FAERS Safety Report 18297401 (Version 2)
Quarter: 2020Q4

REPORT INFORMATION
  Report Type: Spontaneous
  Country: IT (occurrence: IT)
  Receive Date: 20200922
  Receipt Date: 20201007
  Transmission Date: 20210113
  Serious: Yes (Hospitalization, Other)
  Sender: FDA-Public Use
  Company Number: IT-MYLANLABS-2020M1079369

PATIENT
  Age: 58 Year
  Sex: Male

DRUGS (4)
  1. ACETYLSALICYLIC ACID [Suspect]
     Active Substance: ASPIRIN
     Indication: PAROXYSMAL NOCTURNAL HAEMOGLOBINURIA
     Dosage: 100 MG, QD
     Dates: start: 1999
  2. DANAZOL. [Suspect]
     Active Substance: DANAZOL
     Indication: PAROXYSMAL NOCTURNAL HAEMOGLOBINURIA
     Dosage: 50 MG, QD
     Dates: start: 2006
  3. PREDNISONE. [Suspect]
     Active Substance: PREDNISONE
     Indication: PAROXYSMAL NOCTURNAL HAEMOGLOBINURIA
     Dosage: DOSE INCREASED
  4. PREDNISONE. [Suspect]
     Active Substance: PREDNISONE
     Dosage: 25 MG, QD
     Dates: start: 1999

REACTIONS (14)
  - Splenic vein thrombosis [Recovered/Resolved]
  - Rebound effect [Recovering/Resolving]
  - Condition aggravated [Unknown]
  - Renal failure [Unknown]
  - Intentional product misuse [Unknown]
  - Sepsis [Unknown]
  - Pneumonia [Unknown]
  - Haemoglobinuria [Recovering/Resolving]
  - Asthenia [Recovering/Resolving]
  - Off label use [Unknown]
  - Acute kidney injury [Unknown]
  - Portal vein thrombosis [Recovered/Resolved]
  - Paroxysmal nocturnal haemoglobinuria [Unknown]
  - Drug abuse [Unknown]

NARRATIVE: CASE EVENT DATE: 2002
